FAERS Safety Report 22957096 (Version 2)
Quarter: 2023Q4

REPORT INFORMATION
  Report Type: Report from Study
  Country: US (occurrence: US)
  Receive Date: 20230919
  Receipt Date: 20231202
  Transmission Date: 20240109
  Serious: No
  Sender: FDA-Public Use
  Company Number: US-002147023-NVSC2023US201306

PATIENT
  Age: 76 Year
  Sex: Female

DRUGS (1)
  1. LEQVIO [Suspect]
     Active Substance: INCLISIRAN SODIUM
     Indication: Product used for unknown indication
     Dosage: UNK
     Route: 058
     Dates: start: 20230731

REACTIONS (7)
  - General physical health deterioration [Unknown]
  - Arthralgia [Unknown]
  - Limb discomfort [Unknown]
  - Back pain [Unknown]
  - Cough [Unknown]
  - Feeling abnormal [Unknown]
  - Discomfort [Unknown]

NARRATIVE: CASE EVENT DATE: 20230731
